FAERS Safety Report 7803218-0 (Version None)
Quarter: 2011Q4

REPORT INFORMATION
  Report Type: 
  Country: None (occurrence: None)
  Receive Date: 20111005
  Receipt Date: 20110920
  Transmission Date: 20120403
  Serious: Yes (Death)
  Sender: FDA-Public Use
  Company Number: UTC-008776

PATIENT
  Age: 76 Year
  Sex: Female
  Weight: 61.4 kg

DRUGS (3)
  1. REVATIO [Concomitant]
  2. TYVASO [Suspect]
     Indication: COR PULMONALE CHRONIC
     Dosage: 216 MCG (54 MCG,4 IN 1 D),INHALATION
     Route: 055
     Dates: start: 20100709
  3. DIURETICS (DIURETICS) [Concomitant]

REACTIONS (1)
  - RESPIRATORY FAILURE [None]
